FAERS Safety Report 4962956-8 (Version None)
Quarter: 2006Q2

REPORT INFORMATION
  Report Type: 
  Country: None (occurrence: None)
  Receive Date: 20060405
  Receipt Date: 20051130
  Transmission Date: 20061013
  Serious: Yes (Other)
  Sender: FDA-Public Use
  Company Number: FI-AMGEN-UK159678

PATIENT
  Age: 50 Year
  Sex: Male

DRUGS (5)
  1. MIMPARA [Suspect]
     Indication: HYPERPARATHYROIDISM SECONDARY
     Route: 065
     Dates: start: 20041123, end: 20051021
  2. SANDIMMUNE [Interacting]
     Route: 048
     Dates: start: 20050825
  3. CALCIUM CARBONATE [Concomitant]
     Route: 048
  4. ETALPHA [Concomitant]
     Route: 048
  5. CELLCEPT [Concomitant]
     Route: 065

REACTIONS (5)
  - ALANINE AMINOTRANSFERASE INCREASED [None]
  - DRUG INTERACTION [None]
  - GAMMA-GLUTAMYLTRANSFERASE INCREASED [None]
  - IMMUNOSUPPRESSANT DRUG LEVEL INCREASED [None]
  - LIVER FUNCTION TEST ABNORMAL [None]
